FAERS Safety Report 13242538 (Version 2)
Quarter: 2017Q1

REPORT INFORMATION
  Report Type: Spontaneous
  Country: US (occurrence: US)
  Receive Date: 20170216
  Receipt Date: 20170317
  Transmission Date: 20170428
  Serious: Yes (Hospitalization, Other)
  Sender: FDA-Public Use
  Company Number: US-009507513-1702USA005567

PATIENT
  Age: 68 Year
  Sex: Male

DRUGS (1)
  1. KEYTRUDA [Suspect]
     Active Substance: PEMBROLIZUMAB
     Indication: NON-SMALL CELL LUNG CANCER
     Dosage: 200 MG, UNK
     Route: 041
     Dates: start: 20161220

REACTIONS (2)
  - Pneumonitis [Recovered/Resolved]
  - Tumour pseudoprogression [Recovering/Resolving]

NARRATIVE: CASE EVENT DATE: 201612
